FAERS Safety Report 20564137 (Version 1)
Quarter: 2022Q1

REPORT INFORMATION
  Report Type: Spontaneous
  Country: US (occurrence: US)
  Receive Date: 20220308
  Receipt Date: 20220308
  Transmission Date: 20220423
  Serious: No
  Sender: FDA-Public Use
  Company Number: US-ALVOGEN-2022-ALVOGEN-118074

PATIENT
  Sex: Female

DRUGS (1)
  1. LOREEV XR [Suspect]
     Active Substance: LORAZEPAM
     Indication: Anxiety
     Dates: end: 20211204

REACTIONS (7)
  - Eye irritation [Unknown]
  - Neuralgia [Unknown]
  - Pruritus [Unknown]
  - Chills [Unknown]
  - Skin burning sensation [Unknown]
  - Feeling hot [Unknown]
  - Product substitution issue [Unknown]
